FAERS Safety Report 21958154 (Version 2)
Quarter: 2023Q2

REPORT INFORMATION
  Report Type: Spontaneous
  Country: US (occurrence: US)
  Receive Date: 20230206
  Receipt Date: 20230404
  Transmission Date: 20230722
  Serious: Yes (Other)
  Sender: FDA-Public Use
  Company Number: US-PFIZER INC-PV202300021440

PATIENT
  Age: 54 Year
  Sex: Female

DRUGS (1)
  1. XELJANZ XR [Suspect]
     Active Substance: TOFACITINIB CITRATE
     Indication: Psoriatic arthropathy
     Dosage: 11 MG, DAILY
     Route: 048
     Dates: start: 202211

REACTIONS (6)
  - Psoriatic arthropathy [Unknown]
  - Product dose omission issue [Unknown]
  - Pain [Unknown]
  - Sinusitis [Unknown]
  - Exposure to SARS-CoV-2 [Unknown]
  - Condition aggravated [Unknown]
